FAERS Safety Report 14590515 (Version 1)
Quarter: 2018Q1

REPORT INFORMATION
  Report Type: Report from Study
  Country: JP (occurrence: JP)
  Receive Date: 20180302
  Receipt Date: 20180302
  Transmission Date: 20180509
  Serious: Yes (Hospitalization)
  Sender: FDA-Public Use
  Company Number: JP-JT-EVA201800427KERYXP-001

PATIENT
  Age: 79 Year
  Sex: Female
  Weight: 38 kg

DRUGS (18)
  1. RIONA [Suspect]
     Active Substance: FERRIC CITRATE ANHYDROUS
     Indication: HYPERPHOSPHATAEMIA
     Dosage: 1500 MG, QD
     Route: 048
     Dates: start: 20170217, end: 20171019
  2. ATELEC [Concomitant]
     Active Substance: CILNIDIPINE
     Dosage: 10 MG, QD
     Route: 048
  3. NESP [Concomitant]
     Active Substance: DARBEPOETIN ALFA
     Dosage: 15 MICRO-G, UNK
     Route: 042
  4. NESP [Concomitant]
     Active Substance: DARBEPOETIN ALFA
     Dosage: 10 MICRO-G, UNK
     Route: 042
  5. NESP [Concomitant]
     Active Substance: DARBEPOETIN ALFA
     Dosage: 5 MICRO-G, UNK
     Route: 042
  6. NESP [Concomitant]
     Active Substance: DARBEPOETIN ALFA
     Dosage: 10 MICRO-G, QWK
     Route: 042
  7. FUROSEMIDE. [Concomitant]
     Active Substance: FUROSEMIDE
     Dosage: 40 MG, QD
     Route: 048
  8. DIART [Concomitant]
     Active Substance: AZOSEMIDE
     Dosage: 60 MG, QD
     Route: 048
  9. RIONA [Suspect]
     Active Substance: FERRIC CITRATE ANHYDROUS
     Dosage: 250 MG, QD
     Route: 048
     Dates: start: 20171201
  10. NESP [Concomitant]
     Active Substance: DARBEPOETIN ALFA
     Indication: NEPHROGENIC ANAEMIA
     Dosage: 15 MICRO-G, UNK
     Route: 042
  11. NESP [Concomitant]
     Active Substance: DARBEPOETIN ALFA
     Dosage: 5 MICRO-G, QWK
     Route: 042
  12. NESP [Concomitant]
     Active Substance: DARBEPOETIN ALFA
     Dosage: UNK
  13. ARTIST [Concomitant]
     Active Substance: CARVEDILOL
     Dosage: 10 MG, QD
     Route: 048
  14. CALCITRIOL. [Concomitant]
     Active Substance: CALCITRIOL
     Indication: HYPERPARATHYROIDISM SECONDARY
     Dosage: 0.5 MICRO-G, 3 TIMES/WK
     Route: 042
  15. NESP [Concomitant]
     Active Substance: DARBEPOETIN ALFA
     Dosage: 20 MICRO-G, QWK
     Route: 042
  16. RIONA [Suspect]
     Active Substance: FERRIC CITRATE ANHYDROUS
     Dosage: 750 MG, QD
     Route: 048
     Dates: start: 20171020, end: 20171130
  17. CALTAN [Concomitant]
     Active Substance: CALCIUM CARBONATE
     Indication: HYPERPHOSPHATAEMIA
     Dosage: 3000 MG, QD
     Route: 048
     Dates: end: 20171116
  18. CALTAN [Concomitant]
     Active Substance: CALCIUM CARBONATE
     Dosage: 1500 MG, QD
     Route: 048
     Dates: start: 20171117

REACTIONS (1)
  - Pelvic fracture [Recovering/Resolving]

NARRATIVE: CASE EVENT DATE: 20171120
